FAERS Safety Report 6814871-2 (Version None)
Quarter: 2010Q3

REPORT INFORMATION
  Report Type: 
  Country: None (occurrence: None)
  Receive Date: 20100702
  Receipt Date: 20100630
  Transmission Date: 20110219
  Serious: Yes (Other)
  Sender: FDA-Public Use
  Company Number: D0068155A

PATIENT

DRUGS (2)
  1. CELSENTRI [Suspect]
     Route: 048
  2. VIRAMUNE [Suspect]
     Route: 065

REACTIONS (3)
  - DRUG INTERACTION [None]
  - DRUG LEVEL DECREASED [None]
  - HEPATIC ENZYME INCREASED [None]
